FAERS Safety Report 21014330 (Version 1)
Quarter: 2022Q2

REPORT INFORMATION
  Report Type: Spontaneous
  Country: FR (occurrence: FR)
  Receive Date: 20220627
  Receipt Date: 20220627
  Transmission Date: 20220720
  Serious: Yes (Other)
  Sender: FDA-Public Use
  Company Number: None

PATIENT
  Age: 57 Year
  Sex: Male

DRUGS (2)
  1. TRASTUZUMAB [Suspect]
     Active Substance: TRASTUZUMAB
     Indication: Gastrointestinal tract adenoma
     Dosage: UNK
     Dates: start: 20200415, end: 202101
  2. IMFINZI [Suspect]
     Active Substance: DURVALUMAB
     Indication: Gastrointestinal tract adenoma
     Dosage: UNK
     Route: 041
     Dates: start: 20210426, end: 20211004

REACTIONS (1)
  - Cardiac failure [Recovering/Resolving]

NARRATIVE: CASE EVENT DATE: 20220519
